FAERS Safety Report 7034397-3 (Version None)
Quarter: 2010Q4

REPORT INFORMATION
  Report Type: 
  Country: None (occurrence: None)
  Receive Date: 20101008
  Receipt Date: 20100927
  Transmission Date: 20110411
  Serious: Yes (Hospitalization, Other)
  Sender: FDA-Public Use
  Company Number: PHHY2010CA64506

PATIENT

DRUGS (4)
  1. ALISKIREN ALI+ [Suspect]
  2. DIURETICS [Concomitant]
     Dosage: UNK
  3. CALCIUM CHANNEL BLOCKERS [Concomitant]
  4. ACE INHIBITOR NOS [Concomitant]

REACTIONS (2)
  - HYPERKALAEMIA [None]
  - HYPERTENSION [None]
